FAERS Safety Report 8586829-7 (Version None)
Quarter: 2012Q3

REPORT INFORMATION
  Report Type: 
  Country: None (occurrence: None)
  Receive Date: 20120810
  Receipt Date: 20120803
  Transmission Date: 20120928
  Serious: Yes (Hospitalization)
  Sender: FDA-Public Use
  Company Number: JP-VERTEX PHARMACEUTICALS INC.-AE-2012-010906

PATIENT
  Age: 51 Year
  Sex: Male

DRUGS (15)
  1. PEGINTERFERON ALFA-2B [Concomitant]
     Route: 058
     Dates: start: 20120710
  2. XYZAL [Concomitant]
     Route: 048
  3. REBETOL [Concomitant]
     Route: 048
     Dates: start: 20120802
  4. ALLOPURINOL [Concomitant]
     Route: 048
  5. ROHYPNOL [Concomitant]
     Route: 048
  6. REBETOL [Concomitant]
     Indication: HEPATITIS C
     Route: 048
     Dates: start: 20120709, end: 20120709
  7. ZOLPIDEM [Concomitant]
     Route: 048
  8. MUCOSOLVAN L [Concomitant]
     Route: 048
  9. LOXOPROFEN SODIUM HYDRATE [Concomitant]
     Route: 048
  10. REBAMIPIDE [Concomitant]
     Route: 048
  11. REBETOL [Concomitant]
     Route: 048
     Dates: start: 20120710, end: 20120801
  12. AMLODIPINE [Concomitant]
     Route: 048
  13. OLMESARTAN MEDOXOMIL [Concomitant]
     Route: 048
  14. PAXIL CR [Concomitant]
     Route: 048
  15. TELAVIC (TELAPREVIR) [Suspect]
     Indication: HEPATITIS C
     Route: 048
     Dates: start: 20120709, end: 20120730

REACTIONS (1)
  - URINARY TRACT INFECTION [None]
